FAERS Safety Report 12762979 (Version 2)
Quarter: 2016Q4

REPORT INFORMATION
  Report Type: Spontaneous
  Country: FR (occurrence: FR)
  Receive Date: 20160920
  Receipt Date: 20161011
  Transmission Date: 20170207
  Serious: Yes (Hospitalization, Other)
  Sender: FDA-Public Use
  Company Number: FR-009507513-1609FRA005787

PATIENT
  Age: 51 Year
  Sex: Male

DRUGS (9)
  1. JANUMET [Suspect]
     Active Substance: METFORMIN HYDROCHLORIDE\SITAGLIPTIN PHOSPHATE
     Indication: TYPE 2 DIABETES MELLITUS
     Dosage: 1 TABLET, BID
     Route: 048
     Dates: start: 2008
  2. SOLUPRED [Concomitant]
     Active Substance: PREDNISOLONE
  3. DIAMICRON [Concomitant]
     Active Substance: GLICLAZIDE
  4. ALLOPURINOL. [Concomitant]
     Active Substance: ALLOPURINOL
     Dosage: 100MG IN THE MORNING
  5. PRETERAX (INDAPAMIDE (+) PERINDOPRIL ARGININE) [Interacting]
     Active Substance: INDAPAMIDE\PERINDOPRIL
     Indication: HYPERTENSION
     Dosage: 1 TABLET IN THE MORNING
     Route: 048
     Dates: start: 2008
  6. LEVOTHYROX [Concomitant]
     Active Substance: LEVOTHYROXINE
     Dosage: 112.5 MICROGRAM  IN THE MORNING
  7. ADVAGRAF [Concomitant]
     Active Substance: TACROLIMUS
     Dosage: 3 MG IN THE MORNING
  8. LERCAN [Concomitant]
     Active Substance: LERCANIDIPINE
     Dosage: 20 MG IN THE MORNING
  9. CELLCEPT [Concomitant]
     Active Substance: MYCOPHENOLATE MOFETIL\MYCOPHENOLATE MOFETIL HYDROCHLORIDE
     Dosage: 1 G IN THE MORNING AND IN THE EVENING

REACTIONS (4)
  - Angioedema [Recovered/Resolved]
  - Dyspnoea [Recovered/Resolved]
  - Abdominal distension [Recovered/Resolved]
  - Diarrhoea [Recovered/Resolved]

NARRATIVE: CASE EVENT DATE: 20160818
